FAERS Safety Report 8326521-7 (Version None)
Quarter: 2012Q2

REPORT INFORMATION
  Report Type: 
  Country: None (occurrence: None)
  Receive Date: 20120501
  Receipt Date: 20090803
  Transmission Date: 20120825
  Serious: No
  Sender: FDA-Public Use
  Company Number: US-TEVA-2009009178

PATIENT
  Sex: Male

DRUGS (3)
  1. EFFEXOR XR [Concomitant]
  2. NUVIGIL [Suspect]
     Route: 048
  3. LORAZEPAM [Concomitant]

REACTIONS (3)
  - VISION BLURRED [None]
  - DIZZINESS [None]
  - ANXIETY [None]
